FAERS Safety Report 22294857 (Version 2)
Quarter: 2023Q2

REPORT INFORMATION
  Report Type: Spontaneous
  Country: US (occurrence: US)
  Receive Date: 20230508
  Receipt Date: 20230511
  Transmission Date: 20230722
  Serious: Yes (Other)
  Sender: FDA-Public Use
  Company Number: US-PFIZER INC-202300176672

PATIENT
  Age: 6 Year
  Sex: Female

DRUGS (1)
  1. GENOTROPIN [Suspect]
     Active Substance: SOMATROPIN
     Dosage: UNK, DAILY; (0.6 SEVEN DAYS A WEEK SUBCUTANEOUS INJECTION)
     Route: 058

REACTIONS (2)
  - Drug dose omission by device [Not Recovered/Not Resolved]
  - Device use error [Not Recovered/Not Resolved]
